FAERS Safety Report 10019329 (Version 3)
Quarter: 2014Q2

REPORT INFORMATION
  Report Type: Spontaneous
  Country: US (occurrence: US)
  Receive Date: 20140318
  Receipt Date: 20140609
  Transmission Date: 20141212
  Serious: No
  Sender: FDA-Public Use
  Company Number: US-B.I. PHARMACEUTICALS,INC./RIDGEFIELD-2014-BI-09881BP

PATIENT
  Sex: Female
  Weight: 56.81 kg

DRUGS (4)
  1. SPIRIVA [Suspect]
     Indication: COUGH
     Dosage: 18 MCG
     Route: 055
     Dates: start: 2012
  2. SPIRIVA [Suspect]
     Indication: RHEUMATOID LUNG
  3. DULERA [Concomitant]
     Indication: COUGH
     Dosage: FORMULATION:INHALATION AEROSOL
     Route: 055
  4. DULERA [Concomitant]
     Indication: RHEUMATOID LUNG

REACTIONS (6)
  - Oral discomfort [Recovered/Resolved]
  - Throat irritation [Recovered/Resolved]
  - Off label use [Unknown]
  - Off label use [Unknown]
  - Product quality issue [Recovered/Resolved]
  - Product quality issue [Recovered/Resolved]
